FAERS Safety Report 12955597 (Version 1)
Quarter: 2016Q4

REPORT INFORMATION
  Report Type: Spontaneous
  Country: FR (occurrence: FR)
  Receive Date: 20161118
  Receipt Date: 20161118
  Transmission Date: 20170207
  Serious: Yes (Other)
  Sender: FDA-Public Use
  Company Number: FR-PFIZER INC-2016522742

PATIENT
  Age: 66 Year
  Sex: Male

DRUGS (3)
  1. DOXYCYCLINE. [Concomitant]
     Active Substance: DOXYCYCLINE
     Dosage: UNK
     Route: 048
     Dates: start: 201607, end: 201608
  2. ERBITUX [Suspect]
     Active Substance: CETUXIMAB
     Indication: CHEMOTHERAPY
     Dosage: UNK, CYCLIC (EVERY 15 DAYS)
     Route: 042
     Dates: start: 201607, end: 201609
  3. CAMPTO [Suspect]
     Active Substance: IRINOTECAN
     Dosage: UNK, CYCLIC (EVERY 15 DAYS)
     Route: 042
     Dates: start: 201607, end: 201609

REACTIONS (1)
  - Photosensitivity reaction [Unknown]

NARRATIVE: CASE EVENT DATE: 201608
